FAERS Safety Report 10238640 (Version 2)
Quarter: 2014Q2

REPORT INFORMATION
  Report Type: Spontaneous
  Country: US (occurrence: US)
  Receive Date: 20140616
  Receipt Date: 20140616
  Transmission Date: 20141212
  Serious: No
  Sender: FDA-Public Use
  Company Number: US-ENDO PHARMACEUTICALS INC.-OPCR20122104

PATIENT
  Age: 39 Year
  Sex: Male

DRUGS (2)
  1. OPANA ER 40MG [Suspect]
     Indication: PAIN
     Dosage: 40 MG
     Route: 048
     Dates: start: 2012, end: 20121207
  2. OPANA ER 40MG [Suspect]
     Dosage: 40 MG
     Route: 048

REACTIONS (2)
  - Withdrawal syndrome [Not Recovered/Not Resolved]
  - Drug effect decreased [Unknown]
